FAERS Safety Report 23561221 (Version 1)
Quarter: 2024Q1

REPORT INFORMATION
  Report Type: Spontaneous
  Country: GB (occurrence: GB)
  Receive Date: 20240224
  Receipt Date: 20240224
  Transmission Date: 20240410
  Serious: Yes (Disabling, Other)
  Sender: FDA-Public Use
  Company Number: GB-MHRA-TPP16216315C7968735YC1707222852544

PATIENT
  Age: 47 Year
  Sex: Female
  Weight: 128 kg

DRUGS (8)
  1. NAPROXEN [Suspect]
     Active Substance: NAPROXEN
     Indication: Product used for unknown indication
     Dosage: 500 MILLIGRAM (TAKE ONE TABLET WITH OR SOON AFTER FOOD TWICE A...)
     Route: 065
     Dates: start: 20240205
  2. BECLOMETHASONE DIPROPIONATE [Concomitant]
     Active Substance: BECLOMETHASONE DIPROPIONATE
     Indication: Product used for unknown indication
     Dosage: 2 DOSAGE FORM, TWO TIMES A DAY
     Route: 055
     Dates: start: 20240112
  3. CODEINE PHOSPHATE [Concomitant]
     Active Substance: CODEINE PHOSPHATE
     Indication: Product used for unknown indication
     Dosage: 1 DOSAGE FORM (UP TO FOUR TIMES A DAY.)
     Route: 065
     Dates: start: 20240201
  4. DIAZEPAM [Concomitant]
     Active Substance: DIAZEPAM
     Indication: Product used for unknown indication
     Dosage: 1 DOSAGE FORM, 3 TIMES A DAY
     Route: 065
     Dates: start: 20240202
  5. GABAPENTIN [Concomitant]
     Active Substance: GABAPENTIN
     Indication: Product used for unknown indication
     Dosage: TAKE ONE 3 TIMES/DAY. CAN INCREASE BY ONE CAPSULE EVERY 2 DAYS. MAX THREE CAPSULES THREE TIMES A DAY
     Route: 065
     Dates: start: 20240205
  6. OMEPRAZOLE [Concomitant]
     Active Substance: OMEPRAZOLE
     Indication: Product used for unknown indication
     Dosage: 1 DOSAGE FORM, ONCE A DAY (WHILE ON NAPROXEN)
     Route: 065
     Dates: start: 20240205
  7. ALBUTEROL [Concomitant]
     Active Substance: ALBUTEROL
     Indication: Product used for unknown indication
     Dosage: 2 DOSAGE FORM, AS NECESSARY
     Route: 055
     Dates: start: 20240112
  8. ALBUTEROL [Concomitant]
     Active Substance: ALBUTEROL
     Indication: Product used for unknown indication
     Dosage: 2 DOSAGE FORM, AS DIRECTED
     Route: 055
     Dates: start: 20231220

REACTIONS (3)
  - Urinary retention [Unknown]
  - Dyspnoea [Recovered/Resolved]
  - Rhinorrhoea [Unknown]
